FAERS Safety Report 24296709 (Version 13)
Quarter: 2025Q2

REPORT INFORMATION
  Report Type: Report from Study
  Country: CA (occurrence: CA)
  Receive Date: 20240909
  Receipt Date: 20250623
  Transmission Date: 20250716
  Serious: Yes (Other)
  Sender: JOHNSON AND JOHNSON
  Company Number: CA-JNJFOC-20240812150

PATIENT
  Age: 52 Year
  Sex: Male
  Weight: 98 kg

DRUGS (13)
  1. REMICADE [Suspect]
     Active Substance: INFLIXIMAB
     Indication: Colitis ulcerative
     Route: 041
     Dates: start: 20220430
  2. REMICADE [Suspect]
     Active Substance: INFLIXIMAB
     Route: 041
     Dates: start: 20220430
  3. REMICADE [Suspect]
     Active Substance: INFLIXIMAB
     Dosage: EXPIRY DATE: JA/2027
     Route: 041
  4. REMICADE [Suspect]
     Active Substance: INFLIXIMAB
     Route: 041
  5. REMICADE [Suspect]
     Active Substance: INFLIXIMAB
     Route: 041
  6. REMICADE [Suspect]
     Active Substance: INFLIXIMAB
     Route: 041
  7. REMICADE [Suspect]
     Active Substance: INFLIXIMAB
     Route: 041
     Dates: start: 20220430
  8. REMICADE [Suspect]
     Active Substance: INFLIXIMAB
     Dosage: EXPIRY DATE: MA/2027
     Route: 041
  9. REMICADE [Suspect]
     Active Substance: INFLIXIMAB
     Route: 041
  10. REMICADE [Suspect]
     Active Substance: INFLIXIMAB
     Route: 041
     Dates: start: 20220430
  11. REMICADE [Suspect]
     Active Substance: INFLIXIMAB
     Route: 041
  12. ENTOCORT [Suspect]
     Active Substance: BUDESONIDE
     Indication: Product used for unknown indication
     Route: 065
  13. LYRICA [Suspect]
     Active Substance: PREGABALIN
     Indication: Pain
     Route: 065

REACTIONS (7)
  - Clostridium difficile infection [Recovered/Resolved]
  - Colitis ulcerative [Not Recovered/Not Resolved]
  - Herpes zoster [Recovered/Resolved]
  - Cough [Not Recovered/Not Resolved]
  - Nasopharyngitis [Not Recovered/Not Resolved]
  - Adverse event [Recovered/Resolved]
  - Drug level abnormal [Unknown]

NARRATIVE: CASE EVENT DATE: 20240809
